FAERS Safety Report 4716275-5 (Version None)
Quarter: 2005Q2

REPORT INFORMATION
  Report Type: 
  Country: None (occurrence: None)
  Receive Date: 20050630
  Receipt Date: 20050125
  Transmission Date: 20051028
  Serious: Yes (Hospitalization)
  Sender: FDA-Public Use
  Company Number: US_990318497

PATIENT
  Sex: Female

DRUGS (21)
  1. HUMALOG [Suspect]
     Indication: DIABETES MELLITUS
  2. HUMULIN 70/30 [Suspect]
     Indication: DIABETES MELLITUS
     Dates: start: 19970901
  3. HUMULIN R [Suspect]
     Indication: DIABETES MELLITUS
     Dosage: 10 U/3 DAY
  4. HUMULIN N [Suspect]
     Indication: DIABETES MELLITUS
  5. HUMULIN R [Suspect]
     Indication: DIABETES MELLITUS
  6. LENTE ILETIN II (PORK) [Suspect]
     Indication: DIABETES MELLITUS
     Dosage: 5 U/2 DAY
  7. ILETIN [Suspect]
     Indication: DIABETES MELLITUS
     Dosage: 10 U/2 DAY
     Dates: start: 20000101
  8. REGULAR INSULIN [Suspect]
     Indication: DIABETES MELLITUS
     Dosage: 5 U/3 DAY
     Dates: start: 20000101, end: 20011101
  9. INSULIN [Suspect]
     Indication: DIABETES MELLITUS
  10. THYROID TAB [Concomitant]
  11. PREMARIN [Concomitant]
  12. LEVAQUIN [Concomitant]
  13. TOBRAMYCIN [Concomitant]
  14. PULMICORT [Concomitant]
  15. SINGULAIR [Concomitant]
  16. NOVOLIN 70/30 [Concomitant]
  17. REPAGLINIDE [Concomitant]
  18. ACARBOSE [Concomitant]
  19. PIRBUTEROL ACETATE [Concomitant]
  20. INSULIN HUMAN [Concomitant]
  21. LANTUS [Concomitant]

REACTIONS (14)
  - ARTHRALGIA [None]
  - ASTHMA [None]
  - BLOOD GLUCOSE INCREASED [None]
  - BLOOD KETONE BODY [None]
  - COUGH [None]
  - DRUG HYPERSENSITIVITY [None]
  - EAR INFECTION [None]
  - HEART RATE INCREASED [None]
  - HEART RATE IRREGULAR [None]
  - KIDNEY INFECTION [None]
  - PROTEINURIA [None]
  - THROAT TIGHTNESS [None]
  - UPPER RESPIRATORY TRACT INFECTION [None]
  - WHEEZING [None]
